FAERS Safety Report 16458594 (Version 1)
Quarter: 2019Q2

REPORT INFORMATION
  Report Type: Spontaneous
  Country: US (occurrence: US)
  Receive Date: 20190620
  Receipt Date: 20190620
  Transmission Date: 20190711
  Serious: No
  Sender: FDA-Public Use
  Company Number: US-THERAPEUTICSMD-2019TMD00673

PATIENT
  Age: 33 Year
  Sex: Female
  Weight: 49.89 kg

DRUGS (2)
  1. UNSPECIFIED BIRTH CONTROL PILL [Concomitant]
     Active Substance: UNSPECIFIED INGREDIENT
  2. IMVEXXY [Suspect]
     Active Substance: ESTRADIOL
     Indication: VULVOVAGINAL DRYNESS
     Dosage: 10 ?G, 1X/DAY BEFORE BED
     Route: 067
     Dates: start: 201903, end: 20190409

REACTIONS (2)
  - Off label use [Recovered/Resolved]
  - Vulvovaginal pain [Recovering/Resolving]

NARRATIVE: CASE EVENT DATE: 201903
